FAERS Safety Report 6003722-4 (Version None)
Quarter: 2008Q4

REPORT INFORMATION
  Report Type: 
  Country: None (occurrence: None)
  Receive Date: 20081212
  Receipt Date: 20081128
  Transmission Date: 20090506
  Serious: Yes (Other)
  Sender: FDA-Public Use
  Company Number: 20708

PATIENT
  Age: 36 Year
  Sex: Female

DRUGS (4)
  1. CARBOPLATIN [Suspect]
     Indication: ADENOCARCINOMA
  2. GEMCITABINE HCL [Suspect]
     Indication: ADENOCARCINOMA
  3. TARCEVA [Suspect]
     Indication: ADENOCARCINOMA
  4. TAXOTERE [Suspect]
     Indication: ADENOCARCINOMA

REACTIONS (3)
  - CONVULSION [None]
  - DISEASE PROGRESSION [None]
  - NO THERAPEUTIC RESPONSE [None]
